FAERS Safety Report 13172274 (Version 1)
Quarter: 2017Q1

REPORT INFORMATION
  Report Type: Spontaneous
  Country: US (occurrence: US)
  Receive Date: 20170201
  Receipt Date: 20170201
  Transmission Date: 20170428
  Serious: Yes (Other)
  Sender: FDA-Public Use
  Company Number: US-TESARO INC.-TS50-00020-2017USA

PATIENT
  Sex: Male

DRUGS (2)
  1. VARUBI [Suspect]
     Active Substance: ROLAPITANT
     Indication: NAUSEA
     Dosage: TWO TABLETS
     Route: 048
  2. VARUBI [Suspect]
     Active Substance: ROLAPITANT
     Indication: VOMITING

REACTIONS (8)
  - Leukopenia [Unknown]
  - Dysuria [Unknown]
  - Fatigue [Unknown]
  - Anaemia [Unknown]
  - Temperature intolerance [Unknown]
  - Transaminases increased [Unknown]
  - Back pain [Unknown]
  - Vitamin D deficiency [Unknown]
